FAERS Safety Report 16409320 (Version 1)
Quarter: 2019Q3

REPORT INFORMATION
  Report Type: Spontaneous
  Country: US (occurrence: US)
  Receive Date: 20190609
  Receipt Date: 20190609
  Transmission Date: 20191004
  Serious: No
  Sender: FDA-Public Use
  Company Number: None

PATIENT
  Age: 26 Year
  Sex: Female
  Weight: 58.97 kg

DRUGS (2)
  1. NEXPLANON [Suspect]
     Active Substance: ETONOGESTREL
  2. FLUTICASONE PROPIONATE NASAL SPRAY [Concomitant]
     Active Substance: FLUTICASONE PROPIONATE

REACTIONS (14)
  - Disturbance in attention [None]
  - Migraine [None]
  - Lethargy [None]
  - Depressed mood [None]
  - Irritability [None]
  - Tremor [None]
  - Frustration tolerance decreased [None]
  - Sleep disorder [None]
  - Decreased appetite [None]
  - Depression [None]
  - Fatigue [None]
  - Cognitive disorder [None]
  - Somnolence [None]
  - Mania [None]

NARRATIVE: CASE EVENT DATE: 20190607
